FAERS Safety Report 9849389 (Version 3)
Quarter: 2014Q1

REPORT INFORMATION
  Report Type: Spontaneous
  Country: US (occurrence: US)
  Receive Date: 20140128
  Receipt Date: 20140210
  Transmission Date: 20141002
  Serious: No
  Sender: FDA-Public Use
  Company Number: US-009507513-1401USA007552

PATIENT
  Age: 50 Year
  Sex: Male

DRUGS (4)
  1. PEGINTRON [Suspect]
     Indication: HEPATITIS C
     Dosage: REDIPEN, QW
     Route: 058
     Dates: start: 20131206
  2. REBETOL [Suspect]
     Indication: HEPATITIS C
     Dosage: UNK DOSE, BID
     Route: 048
     Dates: start: 20131206
  3. VICTRELIS [Suspect]
     Indication: HEPATITIS C
     Dosage: DOSE UNK, Q8H
     Route: 048
     Dates: start: 20140104
  4. HYDROCODONE [Concomitant]
     Dosage: EVERYDAY

REACTIONS (13)
  - Haemoglobin decreased [Unknown]
  - Feeling hot [Unknown]
  - Feeling cold [Unknown]
  - Dysgeusia [Unknown]
  - Constipation [Unknown]
  - Abdominal discomfort [Unknown]
  - Irritability [Unknown]
  - Injection site erythema [Unknown]
  - Injection site pruritus [Unknown]
  - Fatigue [Unknown]
  - Nausea [Unknown]
  - Vomiting [Unknown]
  - Headache [Unknown]
